FAERS Safety Report 6723304-6 (Version None)
Quarter: 2010Q2

REPORT INFORMATION
  Report Type: 
  Country: None (occurrence: None)
  Receive Date: 20100513
  Receipt Date: 20100503
  Transmission Date: 20101027
  Serious: Yes (Other)
  Sender: FDA-Public Use
  Company Number: US-KINGPHARMUSA00001-K201000561

PATIENT
  Age: 42 Year
  Sex: Female

DRUGS (1)
  1. EMBEDA [Suspect]
     Indication: PAIN
     Dosage: 30 MG, QD
     Dates: start: 20100201, end: 20100430

REACTIONS (1)
  - DRUG WITHDRAWAL CONVULSIONS [None]
